FAERS Safety Report 10211300 (Version 1)
Quarter: 2014Q2

REPORT INFORMATION
  Report Type: Spontaneous
  Country: US (occurrence: None)
  Receive Date: 20140530
  Receipt Date: 20140530
  Transmission Date: 20141212
  Serious: No
  Sender: FDA-Public Use
  Company Number: None

PATIENT
  Age: 50 Year
  Sex: Female
  Weight: 127.01 kg

DRUGS (1)
  1. FLUCONAZOLE [Suspect]
     Indication: VULVOVAGINAL MYCOTIC INFECTION
     Dosage: 1 PILL  1 TIME  TAKEN BY MOUTH
     Route: 048

REACTIONS (7)
  - Erythema [None]
  - Skin hypertrophy [None]
  - Pruritus [None]
  - Eye pain [None]
  - Eye irritation [None]
  - Foreign body in eye [None]
  - Similar reaction on previous exposure to drug [None]
